FAERS Safety Report 10392397 (Version 1)
Quarter: 2014Q3

REPORT INFORMATION
  Report Type: Spontaneous
  Country: US (occurrence: None)
  Receive Date: 20140815
  Receipt Date: 20140815
  Transmission Date: 20150326
  Serious: Yes (Other)
  Sender: FDA-Public Use
  Company Number: 2488986

PATIENT
  Sex: 0

DRUGS (1)
  1. DEXMEDETOMIDINE HYDROCHLORIDE) [Suspect]
     Active Substance: DEXMEDETOMIDINE HYDROCHLORIDE
     Indication: SEDATION
     Route: 041
     Dates: start: 201212

REACTIONS (2)
  - Septic shock [None]
  - Off label use [None]
